FAERS Safety Report 7930835-X (Version None)
Quarter: 2011Q4

REPORT INFORMATION
  Report Type: 
  Country: None (occurrence: None)
  Receive Date: 20111121
  Receipt Date: 20111107
  Transmission Date: 20120403
  Serious: Yes (Death, Hospitalization)
  Sender: FDA-Public Use
  Company Number: US-ACTELION-A-NJ2011-56759

PATIENT

DRUGS (7)
  1. EPOPROSTENOL SODIUM [Suspect]
     Indication: PULMONARY ARTERIAL HYPERTENSION
     Dosage: 33 NG/KG, PER MIN
     Route: 041
     Dates: start: 20110915, end: 20111106
  2. COUMADIN [Concomitant]
  3. LETAIRIS [Concomitant]
  4. VIREAD [Concomitant]
  5. PREZISTA [Concomitant]
  6. NORVIR [Concomitant]
  7. SILDENAFIL [Concomitant]

REACTIONS (2)
  - LYMPHOMA [None]
  - CONCOMITANT DISEASE PROGRESSION [None]
